FAERS Safety Report 25041346 (Version 1)
Quarter: 2025Q1

REPORT INFORMATION
  Report Type: Spontaneous
  Country: US (occurrence: US)
  Receive Date: 20250305
  Receipt Date: 20250305
  Transmission Date: 20250409
  Serious: No
  Sender: PADAGIS
  Company Number: US-PADAGIS-2025PAD00250

PATIENT

DRUGS (2)
  1. ESTRADIOL VAGINAL [Suspect]
     Active Substance: ESTRADIOL
     Indication: Bladder discomfort
     Dosage: 1 G, ONCE A WEEK
     Route: 065
  2. PREMARIN [Concomitant]
     Active Substance: ESTROGENS, CONJUGATED
     Indication: Bladder discomfort
     Dosage: HALF A GRAM TWICE A WEEK PREMARIN PREVIOUSLY BY A DIFFERENT MANUFACTURER AND SHE DID IT ONCE A WEEK.
     Route: 065

REACTIONS (2)
  - Product prescribing issue [Unknown]
  - Prescribed underdose [Unknown]
